FAERS Safety Report 16610442 (Version 1)
Quarter: 2019Q3

REPORT INFORMATION
  Report Type: Spontaneous
  Country: PL (occurrence: PL)
  Receive Date: 20190722
  Receipt Date: 20190722
  Transmission Date: 20191004
  Serious: Yes (Other)
  Sender: FDA-Public Use
  Company Number: PL-TEVA-2019-PL-1080037

PATIENT
  Age: 26 Year
  Sex: Female

DRUGS (1)
  1. SUMAMED 500 MG [Suspect]
     Active Substance: AZITHROMYCIN
     Dosage: 500MG

REACTIONS (3)
  - Diarrhoea [Unknown]
  - Swelling [Unknown]
  - Urticaria [Unknown]
